FAERS Safety Report 21325517 (Version 1)
Quarter: 2022Q3

REPORT INFORMATION
  Report Type: Spontaneous
  Country: IN (occurrence: IN)
  Receive Date: 20220912
  Receipt Date: 20220912
  Transmission Date: 20221026
  Serious: Yes (Other)
  Sender: FDA-Public Use
  Company Number: IN-ABBVIE-22K-078-4534071-00

PATIENT
  Age: 62 Year
  Sex: Male

DRUGS (13)
  1. SEVOFLURANE [Suspect]
     Active Substance: SEVOFLURANE
     Indication: Induction of anaesthesia
     Route: 055
  2. FENTANYL [Concomitant]
     Active Substance: FENTANYL
     Indication: Haemodynamic instability
  3. FENTANYL [Concomitant]
     Active Substance: FENTANYL
  4. FENTANYL [Concomitant]
     Active Substance: FENTANYL
     Dosage: 1 UG/KG/H
  5. SUCCINYLCHOLINE [Concomitant]
     Active Substance: SUCCINYLCHOLINE
     Indication: Haemodynamic instability
  6. MIDAZOLAM [Concomitant]
     Active Substance: MIDAZOLAM
     Indication: Endotracheal intubation
     Route: 042
  7. LIDOCAINE HYDROCHLORIDE [Concomitant]
     Active Substance: LIDOCAINE HYDROCHLORIDE
     Indication: Endotracheal intubation
     Route: 048
  8. ATROPINE [Concomitant]
     Active Substance: ATROPINE
     Indication: Bradycardia
  9. EPINEPHRINE [Concomitant]
     Active Substance: EPINEPHRINE
     Indication: Bradycardia
     Route: 042
  10. NOREPINEPHRINE [Concomitant]
     Active Substance: NOREPINEPHRINE
     Indication: Product used for unknown indication
     Dosage: 0.05-0.1 UG/KG/MIN
  11. ENOXAPARIN SODIUM [Concomitant]
     Active Substance: ENOXAPARIN SODIUM
     Indication: Product used for unknown indication
     Route: 058
  12. PIPERACILLIN AND TAZOBACTAM [Concomitant]
     Active Substance: PIPERACILLIN SODIUM\TAZOBACTAM SODIUM
     Indication: Product used for unknown indication
     Route: 042
  13. METRONIDAZOLE [Concomitant]
     Active Substance: METRONIDAZOLE
     Indication: Product used for unknown indication
     Route: 042

REACTIONS (2)
  - Haemodynamic instability [Recovered/Resolved]
  - Hypotension [Recovering/Resolving]
